FAERS Safety Report 4360635-1 (Version None)
Quarter: 2004Q2

REPORT INFORMATION
  Report Type: 
  Country: None (occurrence: None)
  Receive Date: 20040519
  Receipt Date: 20040519
  Transmission Date: 20050107
  Serious: Yes (Hospitalization)
  Sender: FDA-Public Use
  Company Number: None

PATIENT
  Age: 77 Year
  Sex: Female
  Weight: 63.5036 kg

DRUGS (12)
  1. DOCETAXEL 75 MG/M2 [Suspect]
     Indication: NON-SMALL CELL LUNG CANCER
     Dosage: 127 MG Q 3 WEEKS INTRAVENOUS
     Route: 042
     Dates: start: 20040402, end: 20040423
  2. IRESSA [Suspect]
     Indication: NON-SMALL CELL LUNG CANCER
     Dosage: 250 MG QD OTHER
     Route: 050
     Dates: start: 20040402, end: 20040517
  3. SYNTHROID [Concomitant]
  4. ZOCOR [Concomitant]
  5. LOMOTIL [Concomitant]
  6. FOLIC ACID [Concomitant]
  7. VITAMIN B-12 [Concomitant]
  8. CALCIUM [Concomitant]
  9. M.V.I. [Concomitant]
  10. RITALIN [Concomitant]
  11. MEGACE [Concomitant]
  12. IMODIUM [Concomitant]

REACTIONS (4)
  - DIARRHOEA [None]
  - ELECTROLYTE IMBALANCE [None]
  - HYPOKALAEMIA [None]
  - HYPOMAGNESAEMIA [None]
